FAERS Safety Report 5620446-3 (Version None)
Quarter: 2008Q1

REPORT INFORMATION
  Report Type: 
  Country: None (occurrence: None)
  Receive Date: 20080208
  Receipt Date: 20080131
  Transmission Date: 20080703
  Serious: Yes (Hospitalization)
  Sender: FDA-Public Use
  Company Number: JP-ABBOTT-06P-087-0340854-00

PATIENT
  Sex: Male

DRUGS (7)
  1. NORVIR [Suspect]
     Indication: HIV INFECTION
     Route: 048
     Dates: start: 20051207, end: 20060828
  2. LAMIVUDINE/ABACAVIR [Suspect]
     Indication: HIV INFECTION
     Route: 048
     Dates: start: 20050524
  3. ATAZANAVIR SULFATE [Suspect]
     Indication: HIV INFECTION
     Route: 048
     Dates: start: 20051207, end: 20060828
  4. EFAVIRENZ [Concomitant]
     Indication: HIV INFECTION
     Route: 048
     Dates: start: 20050524, end: 20051206
  5. KALETRA [Concomitant]
     Indication: HIV INFECTION
     Route: 048
     Dates: start: 20060829, end: 20061023
  6. KALETRA [Concomitant]
     Indication: HIV INFECTION
     Route: 048
     Dates: start: 20061024
  7. PENTAMIDINE ISETHIONATE [Concomitant]
     Indication: ANTIFUNGAL PROPHYLAXIS
     Route: 055
     Dates: start: 20061024

REACTIONS (3)
  - BLOOD BILIRUBIN INCREASED [None]
  - CASTLEMAN'S DISEASE [None]
  - KAPOSI'S SARCOMA [None]
